FAERS Safety Report 6687645-3 (Version None)
Quarter: 2010Q2

REPORT INFORMATION
  Report Type: 
  Country: None (occurrence: None)
  Receive Date: 20100415
  Receipt Date: 20100406
  Transmission Date: 20101027
  Serious: Yes (Other)
  Sender: FDA-Public Use
  Company Number: DSA_42924_2010

PATIENT
  Age: 61 Year
  Sex: Male

DRUGS (3)
  1. WELLBUTRIN SR [Suspect]
     Indication: DEPRESSION
     Dosage: (150 MG QD)
     Dates: start: 20100302, end: 20100303
  2. FLUPENTIXOL DIHYDROCHLORIDE [Suspect]
  3. PAROXETINE HCL [Concomitant]

REACTIONS (7)
  - ACTIVITIES OF DAILY LIVING IMPAIRED [None]
  - CHEST DISCOMFORT [None]
  - NAUSEA [None]
  - PARAESTHESIA [None]
  - TINNITUS [None]
  - UNEVALUABLE EVENT [None]
  - VERTIGO [None]
